FAERS Safety Report 17196867 (Version 1)
Quarter: 2019Q4

REPORT INFORMATION
  Report Type: Spontaneous
  Country: DK (occurrence: DK)
  Receive Date: 20191224
  Receipt Date: 20191224
  Transmission Date: 20200122
  Serious: Yes (Other)
  Sender: FDA-Public Use
  Company Number: DK-ALLERGAN-1952400US

PATIENT
  Sex: Male

DRUGS (1)
  1. PREDNISOLONE UNK [Suspect]
     Active Substance: PREDNISOLONE
     Indication: EYE IRRITATION
     Dosage: 1 GTT, QD ([DRP] (DROP (1/12 MILLILITRE) STYRKE: 0.5 %)
     Route: 047
     Dates: start: 20190421

REACTIONS (1)
  - Cataract [Not Recovered/Not Resolved]

NARRATIVE: CASE EVENT DATE: 20190909
